FAERS Safety Report 8915820 (Version 1)
Quarter: 2012Q4

REPORT INFORMATION
  Report Type: 
  Country: SE (occurrence: SE)
  Receive Date: 20121119
  Receipt Date: 20121119
  Transmission Date: 20130627
  Serious: Yes (Hospitalization)
  Sender: FDA-Public Use
  Company Number: SE-PFIZER INC-2012284667

PATIENT
  Age: 78 Year
  Sex: Male
  Weight: 88.9 kg

DRUGS (11)
  1. GENOTROPIN [Suspect]
     Indication: GROWTH HORMONE DEFICIENCY
     Dosage: 0.5 mg, 1x/day, 7 injections/week
     Route: 058
     Dates: start: 20040527
  2. LEVOTHYROXINE [Concomitant]
     Indication: TSH DECREASED
     Dosage: UNK
     Dates: start: 19750501
  3. BROMOCRIPTINE [Concomitant]
     Indication: GALACTOSAEMIA
     Dosage: UNK
     Dates: start: 19841101
  4. ATMOS [Concomitant]
     Indication: FOLLICLE-STIMULATING HORMONE DEFICIENCY
     Dosage: UNK
     Dates: start: 19971203
  5. ATMOS [Concomitant]
     Indication: LUTEINIZING HORMONE DEFICIENCY
  6. PROSCAR [Concomitant]
     Indication: PROSTATIC HYPERPLASIA
     Dosage: UNK
     Dates: start: 20050101
  7. COZAAR [Concomitant]
     Indication: HYPERTENSION
     Dosage: UNK
     Dates: start: 20051124
  8. PLENDIL [Concomitant]
     Dosage: UNK
     Dates: start: 20060303
  9. HYDROCORTISON [Concomitant]
     Indication: ACTH DECREASED
     Dosage: UNK
     Dates: start: 20050101
  10. TESTOSTERONE [Concomitant]
     Indication: LUTEINIZING HORMONE DEFICIENCY
     Dosage: UNK
     Dates: start: 19750501
  11. TESTOSTERONE [Concomitant]
     Indication: FOLLICLE-STIMULATING HORMONE DEFICIENCY

REACTIONS (1)
  - Cholangitis [Unknown]
